FAERS Safety Report 16049346 (Version 2)
Quarter: 2019Q2

REPORT INFORMATION
  Report Type: Spontaneous
  Country: DE (occurrence: DE)
  Receive Date: 20190307
  Receipt Date: 20190415
  Transmission Date: 20190711
  Serious: Yes (Hospitalization)
  Sender: FDA-Public Use
  Company Number: PHHY2019DE048858

PATIENT
  Age: 17 Year
  Sex: Female
  Weight: 52 kg

DRUGS (2)
  1. METHYLPHENIDATE. [Suspect]
     Active Substance: METHYLPHENIDATE
     Indication: ATTENTION DEFICIT/HYPERACTIVITY DISORDER
     Dosage: 36 MG, QD (CAPSULE/TABLETS (BOTH WERE REPORTED)
     Route: 065
     Dates: start: 201807
  2. RITALIN [Suspect]
     Active Substance: METHYLPHENIDATE HYDROCHLORIDE
     Indication: ATTENTION DEFICIT/HYPERACTIVITY DISORDER
     Dosage: 10 MG, QD
     Route: 065
     Dates: start: 201807

REACTIONS (8)
  - Overdose [Recovered/Resolved]
  - Electrocardiogram QT prolonged [Recovered/Resolved]
  - Tachycardia [Recovered/Resolved]
  - Nausea [Recovered/Resolved]
  - Agitation [Recovered/Resolved]
  - Vision blurred [Recovered/Resolved]
  - Headache [Recovered/Resolved]
  - Feeling jittery [Recovered/Resolved]

NARRATIVE: CASE EVENT DATE: 20190127
